FAERS Safety Report 6185088-2 (Version None)
Quarter: 2009Q2

REPORT INFORMATION
  Report Type: 
  Country: None (occurrence: None)
  Receive Date: 20090511
  Receipt Date: 20090501
  Transmission Date: 20091009
  Serious: Yes (Hospitalization)
  Sender: FDA-Public Use
  Company Number: JP-JNJFOC-20090301747

PATIENT
  Sex: Male
  Weight: 56 kg

DRUGS (15)
  1. TRAMADOL HYDROCHLORIDE AND ACETAMINOPHEN [Suspect]
     Indication: PAIN
     Dosage: DOSE FREQUENCY: 4-8
     Route: 048
     Dates: start: 20080909, end: 20090306
  2. LORCAM [Concomitant]
     Indication: BACK PAIN
     Route: 048
  3. LORCAM [Concomitant]
     Indication: LUMBAR SPINAL STENOSIS
     Route: 048
  4. PRORENAL [Concomitant]
     Indication: BACK PAIN
     Route: 048
  5. PRORENAL [Concomitant]
     Indication: LUMBAR SPINAL STENOSIS
     Route: 048
  6. MOHRUS [Concomitant]
     Indication: BACK PAIN
     Route: 003
  7. MOHRUS [Concomitant]
     Indication: LUMBAR SPINAL STENOSIS
     Route: 003
  8. VOGLIBOSE OD [Concomitant]
     Indication: DIABETES MELLITUS
     Route: 048
  9. STARSIS [Concomitant]
     Indication: DIABETES MELLITUS
     Route: 048
  10. FAMOTIDINE [Concomitant]
     Indication: GASTRITIS PROPHYLAXIS
     Route: 048
  11. HEAVY MAGNESIUM OXIDE [Concomitant]
     Indication: CONSTIPATION
     Route: 048
  12. ZYRTEC [Concomitant]
     Indication: RHINITIS
     Route: 048
  13. MEDICON [Concomitant]
     Indication: BRONCHITIS CHRONIC
     Route: 048
  14. CIBENOL [Concomitant]
     Indication: ARRHYTHMIA
     Route: 048
  15. VITAMEDIN [Concomitant]
     Indication: MALAISE
     Route: 048

REACTIONS (1)
  - URINARY RETENTION [None]
